FAERS Safety Report 7103613-1 (Version None)
Quarter: 2010Q4

REPORT INFORMATION
  Report Type: 
  Country: None (occurrence: None)
  Receive Date: 20101115
  Receipt Date: 20101102
  Transmission Date: 20110411
  Serious: Yes (Life-Threatening, Hospitalization)
  Sender: FDA-Public Use
  Company Number: GB-MYLANLABS-2010S1014801

PATIENT
  Age: 86 Year
  Sex: Male
  Weight: 110 kg

DRUGS (6)
  1. AZATHIOPRINE [Suspect]
     Indication: ECZEMA
     Route: 048
     Dates: start: 20100715, end: 20100730
  2. ATENOLOL [Concomitant]
     Indication: PRODUCT USED FOR UNKNOWN INDICATION
     Route: 048
  3. CALCICHEW D3 [Concomitant]
     Indication: PRODUCT USED FOR UNKNOWN INDICATION
  4. METFORMIN HCL [Concomitant]
     Indication: PRODUCT USED FOR UNKNOWN INDICATION
     Route: 048
  5. OMEPRAZOLE [Concomitant]
     Indication: PRODUCT USED FOR UNKNOWN INDICATION
     Route: 048
  6. PREDNISOLONE [Concomitant]
     Indication: ECZEMA
     Route: 048
     Dates: start: 20100601

REACTIONS (6)
  - CHILLS [None]
  - HYPERHIDROSIS [None]
  - INFECTION [None]
  - LIVER FUNCTION TEST ABNORMAL [None]
  - MALAISE [None]
  - RENAL IMPAIRMENT [None]
